FAERS Safety Report 10608570 (Version 3)
Quarter: 2015Q2

REPORT INFORMATION
  Report Type: Spontaneous
  Country: US (occurrence: US)
  Receive Date: 20141125
  Receipt Date: 20150626
  Transmission Date: 20150821
  Serious: Yes (Death, Hospitalization, Disabling, Other)
  Sender: FDA-Public Use
  Company Number: US-MERCK-1411USA011815

PATIENT
  Sex: Male
  Weight: 89.34 kg

DRUGS (2)
  1. JANUVIA [Suspect]
     Active Substance: SITAGLIPTIN PHOSPHATE
     Indication: TYPE 2 DIABETES MELLITUS
     Dosage: 50 MG, QD  (1/2 100 MG TAB)
     Route: 048
     Dates: start: 20090803, end: 20100326
  2. ONGLYZA [Suspect]
     Active Substance: SAXAGLIPTIN HYDROCHLORIDE
     Dosage: 5 MG, QD
     Dates: start: 20110210, end: 20120529

REACTIONS (49)
  - Obstruction gastric [Unknown]
  - Acute kidney injury [Unknown]
  - Cerebral disorder [Unknown]
  - Cardiac failure congestive [Unknown]
  - Septic shock [Unknown]
  - Multi-organ failure [Unknown]
  - Metabolic acidosis [Unknown]
  - Bile duct stent insertion [Unknown]
  - Nephrolithiasis [Unknown]
  - Bursitis [Unknown]
  - Asthma [Unknown]
  - Urethral stenosis [Unknown]
  - Adverse drug reaction [Unknown]
  - Pancreatic carcinoma metastatic [Fatal]
  - Device occlusion [Unknown]
  - Pneumobilia [Unknown]
  - Medical device complication [Unknown]
  - Bile duct stent insertion [Unknown]
  - Umbilical hernia [Unknown]
  - Cachexia [Unknown]
  - Metastases to liver [Unknown]
  - Bacterial sepsis [Unknown]
  - Spondylitis [Unknown]
  - Productive cough [Unknown]
  - White blood cell count increased [Unknown]
  - Psoriasis [Unknown]
  - Gastrooesophageal reflux disease [Unknown]
  - Renal cyst [Unknown]
  - Arthralgia [Unknown]
  - Wrong technique in drug usage process [Unknown]
  - Monarthritis [Unknown]
  - Nodule [Unknown]
  - Irritable bowel syndrome [Unknown]
  - Diverticulum [Unknown]
  - Nausea [Unknown]
  - Metastases to large intestine [Unknown]
  - Angina pectoris [Unknown]
  - Gastrointestinal disorder [Unknown]
  - Nephrolithiasis [Unknown]
  - Hypotension [Unknown]
  - Device occlusion [Unknown]
  - Dyspepsia [Unknown]
  - Chronic obstructive pulmonary disease [Not Recovered/Not Resolved]
  - Cardio-respiratory arrest [Fatal]
  - Bile duct stent insertion [Unknown]
  - Arteriosclerosis coronary artery [Unknown]
  - Oedema peripheral [Unknown]
  - Anxiety [Unknown]
  - Vomiting [Unknown]

NARRATIVE: CASE EVENT DATE: 20090803
